FAERS Safety Report 5058855-6 (Version None)
Quarter: 2006Q3

REPORT INFORMATION
  Report Type: 
  Country: None (occurrence: None)
  Receive Date: 20060721
  Receipt Date: 20050801
  Transmission Date: 20061208
  Serious: No
  Sender: FDA-Public Use
  Company Number: US-AMGEN-KDL145033

PATIENT
  Age: 89 Year
  Sex: Male
  Weight: 68.1 kg

DRUGS (6)
  1. PROCRIT [Suspect]
     Indication: RENAL FAILURE CHRONIC
     Route: 058
     Dates: start: 20040101
  2. MEDICINALPRODUCT NOT SPECIFIED BY SENDER [Concomitant]
     Route: 048
  3. MEDICINALPRODUCT NOT SPECIFIED BY SENDER [Concomitant]
  4. MEDICINALPRODUCT NOT SPECIFIED BY SENDER [Concomitant]
  5. MEDICINALPRODUCT NOT SPECIFIED BY SENDER [Concomitant]
  6. MEDICINALPRODUCT NOT SPECIFIED BY SENDER [Concomitant]

REACTIONS (1)
  - ECZEMA ASTEATOTIC [None]
